FAERS Safety Report 22200755 (Version 1)
Quarter: 2023Q2

REPORT INFORMATION
  Report Type: Spontaneous
  Country: US (occurrence: US)
  Receive Date: 20230412
  Receipt Date: 20230412
  Transmission Date: 20230722
  Serious: No
  Sender: FDA-Public Use
  Company Number: US-PADAGIS-2023PAD00440

PATIENT

DRUGS (2)
  1. TRIAMCINOLONE ACETONIDE [Suspect]
     Active Substance: TRIAMCINOLONE ACETONIDE
     Indication: Symptomatic treatment
     Dosage: UNK, (2-WEEK COURSE)
     Route: 065
  2. CLOTRIMAZOLE [Suspect]
     Active Substance: CLOTRIMAZOLE
     Indication: Symptomatic treatment
     Dosage: UNK, (6-WEEK COURSE)
     Route: 061

REACTIONS (1)
  - Treatment failure [Unknown]
